FAERS Safety Report 18077594 (Version 1)
Quarter: 2020Q3

REPORT INFORMATION
  Report Type: Spontaneous
  Country: JP (occurrence: JP)
  Receive Date: 20200727
  Receipt Date: 20200727
  Transmission Date: 20201103
  Serious: Yes (Death, Hospitalization, Other)
  Sender: FDA-Public Use
  Company Number: JP-ASTRAZENECA-2019SF39073

PATIENT
  Age: 29384 Day
  Sex: Male
  Weight: 52 kg

DRUGS (9)
  1. NEXIUM [Concomitant]
     Active Substance: ESOMEPRAZOLE MAGNESIUM
     Route: 048
     Dates: start: 20190330
  2. BEPRICOR [Concomitant]
     Active Substance: BEPRIDIL
     Route: 048
     Dates: start: 20190330
  3. LIXIANA [Concomitant]
     Active Substance: EDOXABAN TOSYLATE
     Route: 048
     Dates: start: 20190221
  4. METHYCOBAL [Concomitant]
     Active Substance: METHYLCOBALAMIN
     Route: 048
     Dates: start: 20190619
  5. MAGMITT [Concomitant]
     Active Substance: MAGNESIUM OXIDE
     Route: 048
     Dates: start: 20190607
  6. URIEF [Concomitant]
     Active Substance: SILODOSIN
     Route: 048
     Dates: start: 20180122
  7. NICORANDIL [Concomitant]
     Active Substance: NICORANDIL
     Route: 048
     Dates: start: 20190513
  8. BREZTRI [Suspect]
     Active Substance: BUDESONIDE\FORMOTEROL\GLYCOPYRRONIUM
     Indication: ASTHMA-CHRONIC OBSTRUCTIVE PULMONARY DISEASE OVERLAP SYNDROME
     Dosage: TWO TIMES A DAY
     Route: 055
     Dates: start: 20190904
  9. MUCOSOLVAN [Concomitant]
     Active Substance: AMBROXOL HYDROCHLORIDE
     Route: 048
     Dates: start: 20160422

REACTIONS (4)
  - Rash [Unknown]
  - Sudden cardiac death [Fatal]
  - Tremor [Unknown]
  - Pneumonia [Recovering/Resolving]

NARRATIVE: CASE EVENT DATE: 20190920
